FAERS Safety Report 14128130 (Version 1)
Quarter: 2017Q4

REPORT INFORMATION
  Report Type: Spontaneous
  Country: US (occurrence: None)
  Receive Date: 20171025
  Receipt Date: 20171025
  Transmission Date: 20180321
  Serious: Yes (Hospitalization)
  Sender: FDA-Public Use
  Company Number: None

PATIENT
  Age: 64 Year
  Sex: Male
  Weight: 89.36 kg

DRUGS (1)
  1. TEMAZEPAM. [Suspect]
     Active Substance: TEMAZEPAM
     Indication: INSOMNIA
     Dates: start: 20130603, end: 20170427

REACTIONS (4)
  - Cerebrovascular accident [None]
  - Hypopnoea [None]
  - Transient ischaemic attack [None]
  - Cyanosis [None]

NARRATIVE: CASE EVENT DATE: 20170921
